FAERS Safety Report 4873355-1 (Version None)
Quarter: 2006Q1

REPORT INFORMATION
  Report Type: 
  Country: None (occurrence: None)
  Receive Date: 20060105
  Receipt Date: 20051221
  Transmission Date: 20060701
  Serious: Yes (Other)
  Sender: FDA-Public Use
  Company Number: US-ROCHE-429957

PATIENT
  Sex: Female

DRUGS (3)
  1. PEGASYS [Suspect]
     Indication: HEPATITIS C VIRUS
     Route: 058
     Dates: end: 20050515
  2. COPEGUS [Suspect]
     Indication: HEPATITIS C
     Route: 048
     Dates: end: 20050515
  3. ZOLOFT [Concomitant]
     Indication: DRUG USE FOR UNKNOWN INDICATION
     Route: 048

REACTIONS (5)
  - AMNESIA [None]
  - CARPAL TUNNEL SYNDROME [None]
  - FIBROMYALGIA [None]
  - NEUROPATHY [None]
  - PAIN [None]
